FAERS Safety Report 9348501 (Version 2)
Quarter: 2013Q3

REPORT INFORMATION
  Report Type: Spontaneous
  Country: FR (occurrence: FR)
  Receive Date: 20130614
  Receipt Date: 20130711
  Transmission Date: 20140515
  Serious: Yes (Hospitalization)
  Sender: FDA-Public Use
  Company Number: FR-TEVA-411781ISR

PATIENT
  Age: 80 Year
  Sex: Female

DRUGS (1)
  1. FUROSEMIDE TEVA 40 MG [Suspect]
     Indication: OEDEMA
     Dosage: 1 TABLET DAILY;
     Route: 048
     Dates: start: 20130517, end: 201306

REACTIONS (2)
  - Dyspnoea [Recovered/Resolved]
  - Feeling abnormal [Not Recovered/Not Resolved]
